FAERS Safety Report 11618753 (Version 3)
Quarter: 2015Q4

REPORT INFORMATION
  Report Type: Report from Study
  Country: DK (occurrence: DK)
  Receive Date: 20151012
  Receipt Date: 20151102
  Transmission Date: 20160304
  Serious: Yes (Hospitalization)
  Sender: FDA-Public Use
  Company Number: DK-ROCHE-1642666

PATIENT
  Age: 58 Year
  Sex: Female
  Weight: 78 kg

DRUGS (15)
  1. TOCILIZUMAB [Suspect]
     Active Substance: TOCILIZUMAB
     Indication: RHEUMATOID ARTHRITIS
     Dosage: LAST DOSE PRIOR TO SAE: /JUL/2015
     Route: 058
     Dates: start: 20150217, end: 201508
  2. AMLODIPINE [Concomitant]
     Active Substance: AMLODIPINE BESYLATE
  3. BONVIVA [Concomitant]
     Active Substance: IBANDRONATE SODIUM
     Route: 065
  4. PARACETAMOL [Concomitant]
     Active Substance: ACETAMINOPHEN
  5. DIURAL (DENMARK) [Concomitant]
  6. KALEORID [Concomitant]
     Active Substance: POTASSIUM CHLORIDE
  7. METHOTREXATE [Concomitant]
     Active Substance: METHOTREXATE
  8. LANSOPRAZOLE. [Concomitant]
     Active Substance: LANSOPRAZOLE
  9. SIMVASTATIN. [Concomitant]
     Active Substance: SIMVASTATIN
  10. METEX (METHOTREXATE) [Suspect]
     Active Substance: METHOTREXATE
     Indication: RHEUMATOID ARTHRITIS
     Route: 058
     Dates: start: 20140224
  11. AVAMYS [Concomitant]
     Active Substance: FLUTICASONE FUROATE
  12. CENTYL [Concomitant]
     Active Substance: BENDROFLUMETHIAZIDE
  13. NEURONTIN [Concomitant]
     Active Substance: GABAPENTIN
  14. ACETYLSALICYLIC ACID [Concomitant]
     Active Substance: ASPIRIN
  15. TOCILIZUMAB [Suspect]
     Active Substance: TOCILIZUMAB
     Dosage: LAST DOSE PRIOR TO SAE: /JUL/2015,02/OCT/2015
     Route: 058
     Dates: start: 20150806

REACTIONS (1)
  - Breast cancer [Not Recovered/Not Resolved]

NARRATIVE: CASE EVENT DATE: 20151001
